FAERS Safety Report 23028080 (Version 1)
Quarter: 2023Q4

REPORT INFORMATION
  Report Type: Spontaneous
  Country: US (occurrence: US)
  Receive Date: 20231004
  Receipt Date: 20231004
  Transmission Date: 20240109
  Serious: No
  Sender: FDA-Public Use
  Company Number: US-KAMADA LIMITED-2023-KAM-US000116

PATIENT

DRUGS (1)
  1. KEDRAB [Suspect]
     Active Substance: HUMAN RABIES VIRUS IMMUNE GLOBULIN
     Indication: Animal bite
     Dosage: UNK
     Route: 065

REACTIONS (3)
  - Hypoaesthesia [Unknown]
  - Tremor [Unknown]
  - Fatigue [Unknown]

NARRATIVE: CASE EVENT DATE: 20230613
